FAERS Safety Report 10027953 (Version 1)
Quarter: 2014Q1

REPORT INFORMATION
  Report Type: Spontaneous
  Country: US (occurrence: US)
  Receive Date: 20140321
  Receipt Date: 20140321
  Transmission Date: 20141002
  Serious: Yes (Other)
  Sender: FDA-Public Use
  Company Number: PHHY2014US030866

PATIENT
  Sex: Male

DRUGS (8)
  1. DOXORUBICIN [Suspect]
  2. VINCRISTINE [Suspect]
  3. PREDNISONE [Suspect]
  4. ETOPOSIDE [Suspect]
  5. PREDNISOLONE [Suspect]
  6. PROCARBAZINE [Suspect]
  7. CYCLOPHOSPHAMIDE [Suspect]
  8. RITUXIMAB [Suspect]

REACTIONS (4)
  - Neutropenia [Unknown]
  - Thrombocytopenia [Unknown]
  - Cough [Unknown]
  - Pyrexia [Unknown]
